FAERS Safety Report 9013080 (Version 1)
Quarter: 2013Q1

REPORT INFORMATION
  Report Type: Spontaneous
  Country: BR (occurrence: BR)
  Receive Date: 20130115
  Receipt Date: 20130115
  Transmission Date: 20140127
  Serious: Yes (Other)
  Sender: FDA-Public Use
  Company Number: BR-ABBOTT-13P-020-1033663-00

PATIENT
  Sex: Male
  Weight: 80 kg

DRUGS (6)
  1. TRICOR [Suspect]
     Indication: LIPID METABOLISM DISORDER
     Route: 048
  2. TRICOR [Suspect]
     Indication: BLOOD TRIGLYCERIDES INCREASED
  3. NEOTECT [Concomitant]
     Indication: HYPERTENSION
     Route: 048
  4. NEOTECT [Concomitant]
     Indication: GASTRIC DISORDER
  5. PANTOPRAZOLE [Concomitant]
     Indication: PRODUCT USED FOR UNKNOWN INDICATION
  6. NEXIUM [Concomitant]
     Indication: PRODUCT USED FOR UNKNOWN INDICATION

REACTIONS (6)
  - Laryngeal cancer [Recovered/Resolved]
  - Aphonia [Not Recovered/Not Resolved]
  - Dysphonia [Not Recovered/Not Resolved]
  - Gastritis [Unknown]
  - Blood uric acid abnormal [Unknown]
  - Hypertension [Unknown]
